FAERS Safety Report 10476525 (Version 1)
Quarter: 2014Q3

REPORT INFORMATION
  Report Type: Report from Study
  Country: BR (occurrence: BR)
  Receive Date: 20140925
  Receipt Date: 20140925
  Transmission Date: 20150326
  Serious: Yes (Other)
  Sender: FDA-Public Use
  Company Number: BR-GLAXOSMITHKLINE-B1036876A

PATIENT
  Sex: Female
  Weight: 49 kg

DRUGS (7)
  1. DAFLON [Concomitant]
     Active Substance: DIOSMIN\HESPERIDIN
     Indication: VARICOSE VEIN
     Dosage: 500MG PER DAY
     Route: 048
  2. HIRUDOID [Concomitant]
     Active Substance: GLYCOSAMINOGLYCANS
     Indication: VARICOSE VEIN
     Dosage: 500MG AT NIGHT
     Route: 061
  3. PROPAFENONE. [Suspect]
     Active Substance: PROPAFENONE
     Indication: ARRHYTHMIA
     Dosage: 300MG IN THE MORNING
     Route: 048
  4. OLMETEC [Concomitant]
     Active Substance: OLMESARTAN MEDOXOMIL
     Indication: HYPERTENSION
     Dosage: 20MG AT NIGHT
     Route: 048
  5. VITAMIN D [Concomitant]
     Active Substance: CHOLECALCIFEROL
     Dosage: 20MG PER DAY
     Route: 048
  6. OMEGA 3 [Concomitant]
     Active Substance: OMEGA-3 FATTY ACIDS
     Dosage: 20MG THREE TIMES PER DAY
     Route: 048
  7. SYNTHROID [Suspect]
     Active Substance: LEVOTHYROXINE SODIUM
     Indication: THYROID HORMONE REPLACEMENT THERAPY
     Route: 048

REACTIONS (8)
  - Varicose vein [Unknown]
  - Fatigue [Unknown]
  - Malaise [Unknown]
  - Cerebrovascular accident [Recovered/Resolved]
  - Crying [Unknown]
  - Blood pressure abnormal [Unknown]
  - Cerebral thrombosis [Unknown]
  - Influenza [Unknown]
